FAERS Safety Report 10182101 (Version 1)
Quarter: 2014Q2

REPORT INFORMATION
  Report Type: Report from Study
  Country: SE (occurrence: SE)
  Receive Date: 20140520
  Receipt Date: 20140520
  Transmission Date: 20141212
  Serious: Yes (Other)
  Sender: FDA-Public Use
  Company Number: SE-ROCHE-1403962

PATIENT
  Sex: Female

DRUGS (5)
  1. ROACTEMRA [Suspect]
     Indication: RHEUMATOID ARTHRITIS
     Route: 042
     Dates: start: 201210
  2. FOLSYRA [Concomitant]
  3. OMEPRAZOL [Concomitant]
  4. ORUDIS [Concomitant]
  5. METHOTREXATE [Concomitant]

REACTIONS (2)
  - Haemorrhagic diathesis [Unknown]
  - Medication error [Unknown]
